FAERS Safety Report 5863135-2 (Version None)
Quarter: 2008Q3

REPORT INFORMATION
  Report Type: 
  Country: None (occurrence: None)
  Receive Date: 20080828
  Receipt Date: 20080819
  Transmission Date: 20090109
  Serious: Yes (Hospitalization)
  Sender: FDA-Public Use
  Company Number: US-JNJFOC-20080804913

PATIENT
  Sex: Female
  Weight: 36.7 kg

DRUGS (8)
  1. INFLIXIMAB [Suspect]
     Route: 042
  2. INFLIXIMAB [Suspect]
     Indication: INFLAMMATORY BOWEL DISEASE
     Route: 042
  3. MESALAMINE [Concomitant]
  4. MOTRIN [Concomitant]
  5. MULTI-VITAMIN [Concomitant]
  6. GENOTROPIN [Concomitant]
  7. ANTIHISTAMINES [Concomitant]
  8. ACETAMINOPHEN [Concomitant]

REACTIONS (4)
  - ANAEMIA [None]
  - BACTERIAL INFECTION [None]
  - BLOOD ALBUMIN DECREASED [None]
  - PELVIC ABSCESS [None]
